FAERS Safety Report 18554247 (Version 1)
Quarter: 2020Q4

REPORT INFORMATION
  Report Type: Spontaneous
  Country: DE (occurrence: DE)
  Receive Date: 20201127
  Receipt Date: 20201127
  Transmission Date: 20210114
  Serious: Yes (Other)
  Sender: FDA-Public Use
  Company Number: DE-JNJFOC-20201130466

PATIENT
  Age: 21 Year
  Sex: Female

DRUGS (4)
  1. QUETIAPINE. [Suspect]
     Active Substance: QUETIAPINE
     Indication: NERVOUSNESS
  2. QUETIAPINE. [Suspect]
     Active Substance: QUETIAPINE
     Indication: AGITATION
  3. RISPERIDONE. [Suspect]
     Active Substance: RISPERIDONE
     Indication: AGITATION
     Route: 065
  4. RISPERIDONE. [Suspect]
     Active Substance: RISPERIDONE
     Indication: NERVOUSNESS

REACTIONS (4)
  - Electrocardiogram QT prolonged [Recovered/Resolved]
  - Amenorrhoea [Recovering/Resolving]
  - Hyperprolactinaemia [Recovering/Resolving]
  - Breast disorder [Recovering/Resolving]

NARRATIVE: CASE EVENT DATE: 20200531
